FAERS Safety Report 5158028-2 (Version None)
Quarter: 2006Q4

REPORT INFORMATION
  Report Type: 
  Country: None (occurrence: None)
  Receive Date: 20061116
  Receipt Date: 20061103
  Transmission Date: 20070319
  Serious: Yes (Hospitalization, Other)
  Sender: FDA-Public Use
  Company Number: 2006135786

PATIENT
  Age: 80 Year
  Sex: Male

DRUGS (10)
  1. LINEZOLID [Suspect]
     Indication: DRUG USE FOR UNKNOWN INDICATION
     Dosage: 1200 MG (600 MG, 2 IN 1 D), ORAL
     Route: 048
     Dates: start: 20060911
  2. ATENOLOL [Concomitant]
  3. BRIMONIDINE             (BRIMONIDINE) [Concomitant]
  4. CLOMETHIAZOLE              (CLOMETHIAZOLE) [Concomitant]
  5. GLICLAZIDE [Concomitant]
  6. LATANOPROST [Concomitant]
  7. LISINOPRIL [Concomitant]
  8. OMEPRAZOLE [Concomitant]
  9. SIMVASTATIN [Concomitant]
  10. XALCOM [Concomitant]

REACTIONS (3)
  - CONDITION AGGRAVATED [None]
  - HALLUCINATION [None]
  - MENTAL DISORDER [None]
